FAERS Safety Report 8669666 (Version 2)
Quarter: 2012Q4

REPORT INFORMATION
  Report Type: 
  Country: US (occurrence: US)
  Receive Date: 20120718
  Receipt Date: 20121029
  Transmission Date: 20130627
  Serious: Yes (Hospitalization, Other)
  Sender: FDA-Public Use
  Company Number: US-BAYER-2012-070987

PATIENT
  Age: 30 Year
  Sex: Female
  Weight: 97.51 kg

DRUGS (11)
  1. YAZ [Suspect]
     Indication: ACNE
     Dosage: UNK
     Dates: start: 2006, end: 2010
  2. YAZ [Suspect]
     Indication: PREMENSTRUAL SYNDROME
  3. YASMIN [Suspect]
     Indication: ACNE
     Dosage: UNK
     Dates: start: 2006, end: 2010
  4. YASMIN [Suspect]
     Indication: PREMENSTRUAL SYNDROME
  5. IMITREX [Concomitant]
     Indication: MIGRAINE
     Dosage: 25 mg 1 tab PRN
     Dates: start: 2005
  6. PRILOSEC [Concomitant]
     Indication: HEARTBURN
     Dosage: UNK UNK, BID
     Dates: start: 2006, end: 2010
  7. PRILOSEC [Concomitant]
     Indication: ACID REFLUX (OESOPHAGEAL)
  8. LORATADINE [Concomitant]
     Dosage: 10 mg, QD
     Dates: start: 20090406
  9. VANIQA [Concomitant]
     Indication: HIRSUTISM
     Dosage: UNK UNK, BID
     Dates: start: 20090314
  10. ATARAX [Concomitant]
     Dosage: 10 mg/5ml
     Dates: start: 20090406, end: 20090612
  11. PREDNISONE [Concomitant]
     Dosage: 20 mg tabs for 5 days
     Dates: start: 20090407

REACTIONS (4)
  - Cholecystectomy [None]
  - Cholecystitis acute [None]
  - Injury [None]
  - Pain [None]
